FAERS Safety Report 20617268 (Version 3)
Quarter: 2022Q2

REPORT INFORMATION
  Report Type: Report from Study
  Country: US (occurrence: US)
  Receive Date: 20220321
  Receipt Date: 20220420
  Transmission Date: 20220721
  Serious: Yes (Hospitalization)
  Sender: FDA-Public Use
  Company Number: US-BAUSCH-BL-2022-006983

PATIENT
  Age: 62 Year
  Sex: Female

DRUGS (2)
  1. XIFAXAN [Suspect]
     Active Substance: RIFAXIMIN
     Indication: Product used for unknown indication
     Route: 065
  2. LACTULOSE [Suspect]
     Active Substance: LACTULOSE
     Indication: Product used for unknown indication
     Dosage: 2-3 BMS DAILY
     Route: 065

REACTIONS (5)
  - Oesophageal varices haemorrhage [Unknown]
  - Shock [Unknown]
  - Haemoglobin decreased [Unknown]
  - Inability to afford medication [Unknown]
  - Insurance issue [Unknown]
